FAERS Safety Report 24972637 (Version 1)
Quarter: 2025Q1

REPORT INFORMATION
  Report Type: Spontaneous
  Country: US (occurrence: US)
  Receive Date: 20250215
  Receipt Date: 20250215
  Transmission Date: 20250409
  Serious: No
  Sender: EPIC PHARM
  Company Number: US-EPICPHARMA-US-2025EPCSPO00168

PATIENT
  Age: 68 Year
  Sex: Male
  Weight: 145 kg

DRUGS (2)
  1. CHOLESTYRAMINE [Suspect]
     Active Substance: CHOLESTYRAMINE
     Indication: Hypercholesterolaemia
     Dosage: 1/2 SCOOP
     Route: 065
     Dates: start: 20241229, end: 20250129
  2. CHOLESTYRAMINE [Suspect]
     Active Substance: CHOLESTYRAMINE
     Indication: Dyspepsia

REACTIONS (2)
  - Flatulence [Recovered/Resolved]
  - Diarrhoea [Recovered/Resolved]
